FAERS Safety Report 6822753 (Version 4)
Quarter: 2013Q4

REPORT INFORMATION
  Report Type: Spontaneous
  Country: US (occurrence: US)
  Receive Date: 20081125
  Receipt Date: 20131111
  Transmission Date: 20140711
  Serious: Yes (Hospitalization, Other)
  Sender: FDA-Public Use
  Company Number: US-PFIZER INC-2008096542

PATIENT
  Age: 68 Year
  Sex: Male
  Weight: 116 kg

DRUGS (6)
  1. SUTENT [Suspect]
     Indication: RENAL CANCER
     Dosage: 50 MG, 1X/DAY
     Route: 048
     Dates: start: 2007
  2. CLONIDINE [Concomitant]
     Route: 048
  3. COZAAR [Concomitant]
  4. METOPROLOL [Concomitant]
  5. ZOMETA [Concomitant]
  6. METOLAZONE [Concomitant]

REACTIONS (19)
  - Fatigue [Unknown]
  - Gout [Recovered/Resolved]
  - Hypertensive crisis [Recovered/Resolved]
  - Basal cell carcinoma [Recovered/Resolved]
  - Second primary malignancy [Recovered/Resolved]
  - Hypertension [Unknown]
  - Anaemia [Unknown]
  - Vomiting [Unknown]
  - Palmar-plantar erythrodysaesthesia syndrome [Unknown]
  - Abdominal discomfort [Recovered/Resolved]
  - Myalgia [Recovered/Resolved]
  - Diarrhoea [Unknown]
  - Constipation [Unknown]
  - Dyspepsia [Unknown]
  - Yellow skin [Unknown]
  - Tachycardia [Unknown]
  - Dizziness [Unknown]
  - Oral pain [Unknown]
  - Hair colour changes [Unknown]
